FAERS Safety Report 25911607 (Version 1)
Quarter: 2025Q4

REPORT INFORMATION
  Report Type: Spontaneous
  Country: EU (occurrence: EU)
  Receive Date: 20251013
  Receipt Date: 20251013
  Transmission Date: 20260118
  Serious: Yes (Other)
  Sender: Kenvue
  Company Number: EU-ELI_LILLY_AND_COMPANY-ES202507028537

PATIENT

DRUGS (7)
  1. LOPERAMIDE HYDROCHLORIDE [Suspect]
     Active Substance: LOPERAMIDE HYDROCHLORIDE
     Indication: Diarrhoea
     Dosage: UNK UNK, ONCE A DAY, (UNK, PRN)
     Route: 065
  2. ABEMACICLIB [Suspect]
     Active Substance: ABEMACICLIB
     Indication: Breast cancer metastatic
     Dosage: 300 MILLIGRAM, ONCE A DAY (150 MG, BID)
     Route: 048
     Dates: start: 20250620
  3. ABEMACICLIB [Suspect]
     Active Substance: ABEMACICLIB
     Dosage: 300 MILLIGRAM, ONCE A DAY (150 MG, BID)
     Route: 048
  4. ABEMACICLIB [Suspect]
     Active Substance: ABEMACICLIB
     Dosage: 300 MILLIGRAM, ONCE A DAY (150 MG, BID)
     Route: 048
  5. ABEMACICLIB [Suspect]
     Active Substance: ABEMACICLIB
     Dosage: 150 MG, UNKNOWN
     Route: 048
  6. BICALUTAMIDE [Concomitant]
     Active Substance: BICALUTAMIDE
     Indication: Breast cancer
     Dosage: 50 MG
     Route: 065
     Dates: start: 20250730
  7. DOMPERIDONE [Concomitant]
     Active Substance: DOMPERIDONE
     Indication: Product used for unknown indication
     Route: 065

REACTIONS (26)
  - Ulcerative keratitis [Recovering/Resolving]
  - Abdominal pain upper [Recovered/Resolved]
  - Flatulence [Not Recovered/Not Resolved]
  - Dehydration [Not Recovered/Not Resolved]
  - Abdominal discomfort [Not Recovered/Not Resolved]
  - Early satiety [Recovered/Resolved]
  - Tachycardia [Recovered/Resolved]
  - Haemorrhoidal haemorrhage [Recovering/Resolving]
  - Muscle spasms [Unknown]
  - Aphthous ulcer [Unknown]
  - Faeces hard [Recovering/Resolving]
  - Rash [Unknown]
  - Petechiae [Unknown]
  - Dry skin [Unknown]
  - Constipation [Unknown]
  - Abdominal pain [Not Recovered/Not Resolved]
  - Weight decreased [Recovering/Resolving]
  - Dry mouth [Not Recovered/Not Resolved]
  - Diarrhoea [Not Recovered/Not Resolved]
  - Neutrophil count decreased [Not Recovered/Not Resolved]
  - Fatigue [Not Recovered/Not Resolved]
  - Alopecia [Unknown]
  - Blood creatinine increased [Not Recovered/Not Resolved]
  - Nausea [Recovered/Resolved]
  - White blood cell count decreased [Not Recovered/Not Resolved]
  - Red blood cell count decreased [Not Recovered/Not Resolved]

NARRATIVE: CASE EVENT DATE: 20250723
